FAERS Safety Report 11768412 (Version 1)
Quarter: 2015Q4

REPORT INFORMATION
  Report Type: Other
  Country: GB (occurrence: GB)
  Receive Date: 20151123
  Receipt Date: 20151123
  Transmission Date: 20160304
  Serious: Yes (Hospitalization)
  Sender: FDA-Public Use
  Company Number: GB-MYLANLABS-2015M1039819

PATIENT

DRUGS (11)
  1. PARACETAMOL [Concomitant]
     Active Substance: ACETAMINOPHEN
     Indication: PAIN
     Dosage: 500 MG, QID (STOPPED UNTIL FURTHER REVIEW)
  2. AZATHIOPRINE. [Concomitant]
     Active Substance: AZATHIOPRINE
     Indication: NEUROMYELITIS OPTICA
     Dosage: 50 MG, QD (IN THE MORNING. STARTED 2 DAYS PRIOIR TO ADMISSION. STOPPED UNTIL FURTHER REVIEW)
  3. GABAPENTIN. [Concomitant]
     Active Substance: GABAPENTIN
     Dosage: 900 MG, TID (STOPPED UNTIL FURTHER REVIEW)
  4. PREDNISOLONE. [Concomitant]
     Active Substance: PREDNISOLONE
     Dosage: 5 MG, QD (STOPPED UNTIL FURTHER REVIEW)
  5. CARBAMAZEPINE. [Suspect]
     Active Substance: CARBAMAZEPINE
     Indication: DYSTONIA
     Dosage: 600 MG, BID
     Route: 048
     Dates: start: 20150909, end: 20151014
  6. ADCAL-D3 [Concomitant]
     Active Substance: CALCIUM CARBONATE\CHOLECALCIFEROL
     Dosage: 1 DF, BID (STOPPED UNTIL FURTHER REVIEW)
  7. AZATHIOPRINE. [Concomitant]
     Active Substance: AZATHIOPRINE
     Dosage: 25 MG, BID (STARTED 2 MONTHS PRIOR TO ADMISSION. DOSE INCREASED 2 DAYS PRIOR TO ADMISSION)
  8. ALENDRONIC ACID [Concomitant]
     Active Substance: ALENDRONIC ACID
     Dosage: 70 MG, QW (STOPPED UNTIL FURTHER REVIEW)
  9. OMEPRAZOLE. [Concomitant]
     Active Substance: OMEPRAZOLE
     Dosage: 20 MG, QD (STOPPED UNTIL FURTHER REVIEW)
  10. SENNA [Concomitant]
     Active Substance: SENNA LEAF\SENNOSIDES\SENNOSIDES A AND B
     Dosage: 15 MG, QD (AT NIGHT. STOPPED UNTIL FURTHER REVIEW)
  11. MESALAZINE [Concomitant]
     Active Substance: MESALAMINE
     Indication: CROHN^S DISEASE
     Dosage: STOPPED UNTIL FURTHER REVIEW

REACTIONS (5)
  - Rash generalised [Unknown]
  - Dermatitis exfoliative [Recovering/Resolving]
  - Vision blurred [Unknown]
  - Dermatitis [Unknown]
  - Erythema [Unknown]

NARRATIVE: CASE EVENT DATE: 20151009
